FAERS Safety Report 4761739-1 (Version None)
Quarter: 2005Q3

REPORT INFORMATION
  Report Type: 
  Country: None (occurrence: None)
  Receive Date: 20050831
  Receipt Date: 20050728
  Transmission Date: 20060218
  Serious: No
  Sender: FDA-Public Use
  Company Number: PHEH2005US08358

PATIENT
  Age: 79 Year
  Sex: Male

DRUGS (4)
  1. ENABLEX [Suspect]
     Indication: HYPERTONIC BLADDER
     Dosage: 7.5 MG, QD
  2. MIRAPEX [Concomitant]
  3. SINEMET [Concomitant]
  4. EFFEXOR [Concomitant]

REACTIONS (2)
  - CONFUSIONAL STATE [None]
  - TREMOR [None]
